FAERS Safety Report 7683147-6 (Version None)
Quarter: 2011Q3

REPORT INFORMATION
  Report Type: 
  Country: None (occurrence: None)
  Receive Date: 20110812
  Receipt Date: 20110812
  Transmission Date: 20111222
  Serious: No
  Sender: FDA-Public Use
  Company Number: None

PATIENT
  Age: 67 Year
  Sex: Male
  Weight: 63.6 kg

DRUGS (2)
  1. DALIRESP [Suspect]
     Indication: CONDITION AGGRAVATED
     Dosage: 500 MCG DAILY PO
     Route: 048
     Dates: start: 20110711, end: 20110715
  2. DALIRESP [Suspect]
     Indication: CHRONIC OBSTRUCTIVE PULMONARY DISEASE
     Dosage: 500 MCG DAILY PO
     Route: 048
     Dates: start: 20110711, end: 20110715

REACTIONS (1)
  - DIARRHOEA [None]
